FAERS Safety Report 7758386-6 (Version None)
Quarter: 2011Q3

REPORT INFORMATION
  Report Type: 
  Country: None (occurrence: None)
  Receive Date: 20110919
  Receipt Date: 20110912
  Transmission Date: 20111222
  Serious: No
  Sender: FDA-Public Use
  Company Number: US-PFIZER INC-2011138240

PATIENT
  Sex: Female

DRUGS (3)
  1. PREDNISONE [Suspect]
     Dosage: UNK
  2. MEDROL [Suspect]
     Dosage: 4 MG, UNK
  3. MEDROL [Suspect]
     Dosage: 12 MG, UNK

REACTIONS (1)
  - ABDOMINAL PAIN UPPER [None]
